FAERS Safety Report 8910084 (Version 1)
Quarter: 2012Q4

REPORT INFORMATION
  Report Type: Report from Study
  Country: CA (occurrence: CA)
  Receive Date: 20121115
  Receipt Date: 20121115
  Transmission Date: 20130627
  Serious: Yes (Other)
  Sender: FDA-Public Use
  Company Number: CA-JNJFOC-20121104110

PATIENT
  Sex: Male
  Weight: 86.4 kg

DRUGS (5)
  1. REMICADE [Suspect]
     Indication: CROHN^S DISEASE
     Dosage: 51 infusions
     Route: 042
  2. METOPROLOL [Concomitant]
     Route: 065
  3. AMITRIPTYLINE [Concomitant]
     Route: 065
  4. VENLAFAXINE [Concomitant]
     Route: 065
  5. EXTRA-STRENGTH TYLENOL [Concomitant]
     Route: 065

REACTIONS (4)
  - Crohn^s disease [Unknown]
  - Depression [Unknown]
  - Anxiety [Unknown]
  - Blood pressure increased [Unknown]
